FAERS Safety Report 5838341-3 (Version None)
Quarter: 2008Q3

REPORT INFORMATION
  Report Type: 
  Country: None (occurrence: None)
  Receive Date: 20080808
  Receipt Date: 20080731
  Transmission Date: 20090109
  Serious: Yes (Death)
  Sender: FDA-Public Use
  Company Number: TR-AMGEN-US251212

PATIENT
  Age: 11 Year
  Sex: Male
  Weight: 28 kg

DRUGS (3)
  1. ENBREL [Suspect]
     Indication: JUVENILE ARTHRITIS
     Route: 058
     Dates: start: 20071025, end: 20071025
  2. METHOTREXATE [Concomitant]
     Indication: JUVENILE ARTHRITIS
     Route: 065
     Dates: end: 20071023
  3. INDOMETHACIN [Concomitant]
     Indication: JUVENILE ARTHRITIS
     Dosage: UNKNOWN
     Dates: end: 20071025

REACTIONS (8)
  - CYANOSIS [None]
  - DEATH [None]
  - DIARRHOEA [None]
  - HYPOTENSION [None]
  - LOSS OF CONSCIOUSNESS [None]
  - PYREXIA [None]
  - TREMOR [None]
  - VOMITING [None]
